FAERS Safety Report 10661372 (Version 1)
Quarter: 2014Q4

REPORT INFORMATION
  Report Type: Spontaneous
  Country: US (occurrence: US)
  Receive Date: 20141218
  Receipt Date: 20141218
  Transmission Date: 20150529
  Serious: Yes (Death, Life-Threatening, Other)
  Sender: FDA-Public Use
  Company Number: CHPA2014US016422

PATIENT
  Age: 56 Year
  Sex: Female

DRUGS (9)
  1. CLOZAPINE. [Suspect]
     Active Substance: CLOZAPINE
  2. CITALOPRAM [Suspect]
     Active Substance: CITALOPRAM HYDROBROMIDE
     Indication: PRODUCT USED FOR UNKNOWN INDICATION
  3. QUETIAPINE [Suspect]
     Active Substance: QUETIAPINE
  4. GUAIFENESIN. [Suspect]
     Active Substance: GUAIFENESIN
  5. TOPIRAMATE. [Suspect]
     Active Substance: TOPIRAMATE
     Indication: PRODUCT USED FOR UNKNOWN INDICATION
  6. BENZTROPINE [Suspect]
     Active Substance: BENZTROPINE
     Indication: PRODUCT USED FOR UNKNOWN INDICATION
  7. NAPROXEN. [Suspect]
     Active Substance: NAPROXEN
     Indication: PRODUCT USED FOR UNKNOWN INDICATION
  8. DOXYLAMINE [Suspect]
     Active Substance: DOXYLAMINE
     Indication: PRODUCT USED FOR UNKNOWN INDICATION
  9. DEXTROMETHORPHAN UNKNOWN [Suspect]
     Active Substance: DEXTROMETHORPHAN

REACTIONS (6)
  - Bronchopneumonia [Unknown]
  - Foaming at mouth [Unknown]
  - Incontinence [Unknown]
  - Toxicity to various agents [Fatal]
  - Unresponsive to stimuli [Unknown]
  - Abnormal behaviour [Unknown]
